FAERS Safety Report 8910694 (Version 1)
Quarter: 2012Q4

REPORT INFORMATION
  Report Type: Spontaneous
  Country: TR (occurrence: None)
  Receive Date: 20121107
  Receipt Date: 20121107
  Transmission Date: 20130627
  Serious: Yes (Other)
  Sender: FDA-Public Use
  Company Number: FK201203274

PATIENT
  Age: 59 Year
  Sex: Female

DRUGS (1)
  1. PACLITAXEL [Suspect]
     Indication: BREAST CANCER METASTATIC
     Dosage: 80 mg/m2

REACTIONS (6)
  - Encephalopathy [None]
  - Abnormal behaviour [None]
  - Hallucination [None]
  - Sinus tachycardia [None]
  - Disease progression [None]
  - Breast cancer metastatic [None]
